FAERS Safety Report 12966225 (Version 1)
Quarter: 2016Q4

REPORT INFORMATION
  Report Type: Spontaneous
  Country: US (occurrence: US)
  Receive Date: 20161118
  Receipt Date: 20161118
  Transmission Date: 20170207
  Serious: Yes (Hospitalization)
  Sender: FDA-Public Use
  Company Number: None

PATIENT
  Age: 69 Year
  Sex: Male
  Weight: 113.7 kg

DRUGS (1)
  1. LOPERAMIDE [Suspect]
     Active Substance: LOPERAMIDE
     Indication: CONSTIPATION
     Route: 048
     Dates: start: 20160912, end: 20160914

REACTIONS (3)
  - Colonic pseudo-obstruction [None]
  - Diarrhoea [None]
  - Leg amputation [None]

NARRATIVE: CASE EVENT DATE: 20160914
